FAERS Safety Report 11418548 (Version 1)
Quarter: 2015Q3

REPORT INFORMATION
  Report Type: Spontaneous
  Country: US (occurrence: US)
  Receive Date: 20150826
  Receipt Date: 20150826
  Transmission Date: 20151125
  Serious: No
  Sender: FDA-Public Use
  Company Number: US-ACCORD-032739

PATIENT
  Age: 30 Year
  Sex: Male
  Weight: 113.64 kg

DRUGS (3)
  1. LISINOPRIL ACCORD [Suspect]
     Active Substance: LISINOPRIL
     Indication: HYPERTENSION
     Dosage: IN THE EVENING, QD
     Route: 048
     Dates: start: 20150726
  2. METOPROLOL/METOPROLOL FUMARATE/METOPROLOL SUCCINATE/METOPROLOL TARTRATE [Concomitant]
  3. ROPINIROLE/ROPINIROLE HYDROCHLORIDE [Concomitant]

REACTIONS (3)
  - Cold sweat [Recovered/Resolved]
  - Heart rate increased [Recovered/Resolved]
  - Vomiting [Recovered/Resolved]

NARRATIVE: CASE EVENT DATE: 20150726
